FAERS Safety Report 6555626-6 (Version None)
Quarter: 2010Q1

REPORT INFORMATION
  Report Type: 
  Country: None (occurrence: None)
  Receive Date: 20100128
  Receipt Date: 20100120
  Transmission Date: 20100710
  Serious: Yes (Hospitalization, Other)
  Sender: FDA-Public Use
  Company Number: US-KINGPHARMUSA00001-K201000066

PATIENT
  Age: 54 Year
  Sex: Female
  Weight: 81.633 kg

DRUGS (5)
  1. AVINZA [Suspect]
     Indication: BACK PAIN
     Dosage: 480 MG, QD
     Route: 048
     Dates: start: 20070101, end: 20091201
  2. AVINZA [Suspect]
     Indication: POST LAMINECTOMY SYNDROME
  3. OXYCODONE [Concomitant]
     Dosage: 45 MG, QID
     Route: 048
  4. VALIUM [Concomitant]
     Dosage: 10 MG, EVERY 6 HOURS
     Route: 048
  5. NEURONTIN [Concomitant]
     Dosage: 1200 MG, QID
     Route: 048

REACTIONS (2)
  - ACIDOSIS [None]
  - OVERDOSE [None]
